FAERS Safety Report 17718856 (Version 1)
Quarter: 2020Q2

REPORT INFORMATION
  Report Type: Spontaneous
  Country: US (occurrence: US)
  Receive Date: 20200428
  Receipt Date: 20200428
  Transmission Date: 20200714
  Serious: No
  Sender: FDA-Public Use
  Company Number: US-ARBOR PHARMACEUTICALS, LLC-US-2019ARB001442

PATIENT
  Age: 61 Year
  Sex: Female

DRUGS (1)
  1. ERYTHROCIN STEARATE [Suspect]
     Active Substance: ERYTHROMYCIN STEARATE
     Indication: IMPAIRED GASTRIC EMPTYING
     Dosage: 250 MG, TID
     Route: 048
     Dates: start: 2017, end: 20191002

REACTIONS (5)
  - Product odour abnormal [Recovered/Resolved]
  - Influenza [Recovering/Resolving]
  - Product taste abnormal [Recovered/Resolved]
  - Condition aggravated [Unknown]
  - Off label use [Unknown]

NARRATIVE: CASE EVENT DATE: 2017
